FAERS Safety Report 8063014-9 (Version None)
Quarter: 2012Q1

REPORT INFORMATION
  Report Type: 
  Country: None (occurrence: None)
  Receive Date: 20120123
  Receipt Date: 20120119
  Transmission Date: 20120608
  Serious: Yes (Disabling)
  Sender: FDA-Public Use
  Company Number: US-PFIZER INC-2012010705

PATIENT
  Sex: Female

DRUGS (4)
  1. ACCURETIC [Suspect]
     Dosage: UNK
     Route: 065
  2. CADUET [Suspect]
     Dosage: UNK
  3. RELPAX [Suspect]
     Dosage: UNK
  4. PROTONIX [Suspect]
     Dosage: UNK

REACTIONS (1)
  - LIMB OPERATION [None]
